FAERS Safety Report 7169684-1 (Version None)
Quarter: 2010Q4

REPORT INFORMATION
  Report Type: 
  Country: None (occurrence: None)
  Receive Date: 20101217
  Receipt Date: 20101210
  Transmission Date: 20110411
  Serious: Yes (Hospitalization, Other)
  Sender: FDA-Public Use
  Company Number: US-JNJFOC-20101204865

PATIENT
  Sex: Female
  Weight: 98.88 kg

DRUGS (24)
  1. DURAGESIC-100 [Suspect]
     Indication: ARTHRALGIA
     Route: 062
  2. DURAGESIC-100 [Suspect]
     Route: 062
  3. DURAGESIC-100 [Suspect]
     Route: 062
  4. DURAGESIC-100 [Suspect]
     Route: 062
  5. AMBIEN [Suspect]
     Indication: INSOMNIA
     Route: 048
  6. REGLAN [Suspect]
     Indication: COLITIS ULCERATIVE
     Route: 048
  7. TUMS [Concomitant]
     Indication: MINERAL SUPPLEMENTATION
     Route: 048
  8. CYMBALTA [Concomitant]
     Indication: BIPOLAR DISORDER
     Dosage: AT NOON
     Route: 048
  9. CYMBALTA [Concomitant]
     Dosage: IN MORNING
     Route: 048
  10. TRAZODONE [Concomitant]
     Indication: INSOMNIA
     Route: 048
  11. LORTAB [Concomitant]
     Indication: BREAKTHROUGH PAIN
     Dosage: 7.5/500 MG
     Route: 048
  12. TIZANIDINE [Concomitant]
     Indication: MUSCLE SPASMS
     Route: 048
  13. ZOLOFT [Concomitant]
     Indication: DEPRESSION
     Route: 048
  14. TOPAMAX [Concomitant]
     Indication: MIGRAINE
     Route: 048
  15. ZYRTEC [Concomitant]
     Indication: HYPERSENSITIVITY
     Dosage: AS NEEDED
     Route: 048
  16. FOLIC ACID [Concomitant]
     Route: 048
  17. VITAMIN D3 [Concomitant]
     Indication: COLITIS ULCERATIVE
     Dosage: 500 MG 2 TABLETS
     Route: 048
  18. SULFASALAZINE [Concomitant]
     Indication: COLITIS ULCERATIVE
     Route: 048
  19. NEXIUM [Concomitant]
     Indication: GASTROOESOPHAGEAL REFLUX DISEASE
     Route: 048
  20. ZOFRAN [Concomitant]
     Indication: COLITIS ULCERATIVE
     Route: 048
  21. AMITIZA [Concomitant]
     Route: 048
  22. LEVSIN SL [Concomitant]
     Indication: ABDOMINAL PAIN
     Route: 060
  23. COLACE [Concomitant]
     Indication: ABNORMAL FAECES
     Route: 048
  24. VITAMIN B-12 [Concomitant]
     Indication: VITAMIN SUPPLEMENTATION
     Route: 048

REACTIONS (11)
  - ANXIETY [None]
  - ARTHRALGIA [None]
  - CONSTIPATION [None]
  - DEPRESSION [None]
  - DIARRHOEA [None]
  - DYSKINESIA [None]
  - FALL [None]
  - GAIT DISTURBANCE [None]
  - MUSCLE SPASMS [None]
  - PRODUCT ADHESION ISSUE [None]
  - WRONG TECHNIQUE IN DRUG USAGE PROCESS [None]
